FAERS Safety Report 9521977 (Version 1)
Quarter: 2013Q3

REPORT INFORMATION
  Report Type: Report from Study
  Country: US (occurrence: US)
  Receive Date: 20130913
  Receipt Date: 20130913
  Transmission Date: 20140515
  Serious: Yes (Hospitalization)
  Sender: FDA-Public Use
  Company Number: US-ABBOTT-13P-163-1144450-00

PATIENT
  Age: 41 Year
  Sex: Female

DRUGS (7)
  1. HUMIRA [Suspect]
     Indication: COLITIS ULCERATIVE
     Dates: start: 20130703
  2. LIALDA [Concomitant]
     Indication: COLON CANCER
     Route: 048
  3. LIALDA [Concomitant]
     Indication: PROPHYLAXIS
  4. PROTONIX [Concomitant]
     Indication: ABDOMINAL DISTENSION
     Dosage: ONCE OR TWICE PER WEEK
     Route: 048
  5. PROMETHAZINE [Concomitant]
     Indication: NAUSEA
     Dosage: ONCE OR TWICE A DAY
     Route: 048
  6. PREDNISONE [Concomitant]
  7. PREDNISONE [Concomitant]

REACTIONS (7)
  - Diarrhoea [Not Recovered/Not Resolved]
  - Vomiting [Not Recovered/Not Resolved]
  - Nausea [Not Recovered/Not Resolved]
  - Abdominal pain [Not Recovered/Not Resolved]
  - Dehydration [Not Recovered/Not Resolved]
  - Drug ineffective [Not Recovered/Not Resolved]
  - Dysphonia [Not Recovered/Not Resolved]
